FAERS Safety Report 11682987 (Version 1)
Quarter: 2015Q4

REPORT INFORMATION
  Report Type: Spontaneous
  Country: FR (occurrence: FR)
  Receive Date: 20151029
  Receipt Date: 20151029
  Transmission Date: 20160304
  Serious: Yes (Hospitalization)
  Sender: FDA-Public Use
  Company Number: FR-ASTRAZENECA-2015SF03226

PATIENT
  Age: 69 Year
  Sex: Male

DRUGS (11)
  1. CARDENSIEL [Concomitant]
     Active Substance: BISOPROLOL FUMARATE
  2. TRIATEC [Concomitant]
     Active Substance: RAMIPRIL
  3. COTAREG [Concomitant]
     Active Substance: HYDROCHLOROTHIAZIDE\VALSARTAN
  4. ALLOPURINOL. [Concomitant]
     Active Substance: ALLOPURINOL
  5. CRESTOR [Suspect]
     Active Substance: ROSUVASTATIN CALCIUM
     Indication: DYSLIPIDAEMIA
     Route: 048
     Dates: start: 20040512, end: 20040604
  6. ZOXAN SR [Concomitant]
  7. INEXIUM [Concomitant]
     Active Substance: ESOMEPRAZOLE
  8. RILMENIDINE [Concomitant]
     Active Substance: RILMENIDINE
  9. GLUCOR [Concomitant]
     Active Substance: ACARBOSE
  10. KERLONE [Concomitant]
     Active Substance: BETAXOLOL HYDROCHLORIDE
  11. KARDEGIC [Concomitant]
     Active Substance: ASPIRIN LYSINE

REACTIONS (2)
  - Jaundice [Unknown]
  - Hepatocellular injury [Recovered/Resolved]

NARRATIVE: CASE EVENT DATE: 20040604
